FAERS Safety Report 8531615-7 (Version None)
Quarter: 2012Q3

REPORT INFORMATION
  Report Type: 
  Country: None (occurrence: None)
  Receive Date: 20120723
  Receipt Date: 20120713
  Transmission Date: 20120928
  Serious: Yes (Hospitalization)
  Sender: FDA-Public Use
  Company Number: JP-BAXTER-2012BAX011304

PATIENT
  Sex: Female

DRUGS (2)
  1. EXTRANEAL [Suspect]
     Indication: GLOMERULONEPHRITIS
     Route: 033
  2. DIANEAL PD-2 W/ DEXTROSE 4.25% [Suspect]
     Indication: GLOMERULONEPHRITIS
     Route: 033

REACTIONS (1)
  - ARRHYTHMIA [None]
